FAERS Safety Report 24941524 (Version 1)
Quarter: 2025Q1

REPORT INFORMATION
  Report Type: Spontaneous
  Country: US (occurrence: None)
  Receive Date: 20250206
  Receipt Date: 20250206
  Transmission Date: 20250409
  Serious: Yes (Hospitalization)
  Sender: FDA-CTU
  Company Number: None

PATIENT
  Sex: Male

DRUGS (6)
  1. OPSUMIT [Suspect]
     Active Substance: MACITENTAN
     Indication: Pulmonary arterial hypertension
     Dosage: FREQUENCY : DAILY;?
     Route: 048
     Dates: start: 201902
  2. OFEV [Suspect]
     Active Substance: NINTEDANIB
  3. TYVASO DPI [Suspect]
     Active Substance: TREPROSTINIL
  4. TWASO DPI MAINT KIT PWD [Concomitant]
  5. OFEV [Concomitant]
     Active Substance: NINTEDANIB
  6. MYCOPHENOLATE MOFETIL [Concomitant]
     Active Substance: MYCOPHENOLATE MOFETIL

REACTIONS (3)
  - COVID-19 [None]
  - Influenza [None]
  - Pneumonia [None]
